FAERS Safety Report 5829981-6 (Version None)
Quarter: 2008Q3

REPORT INFORMATION
  Report Type: 
  Country: None (occurrence: None)
  Receive Date: 20080801
  Receipt Date: 20080723
  Transmission Date: 20090109
  Serious: Yes (Other)
  Sender: FDA-Public Use
  Company Number: US-ROCHE-577572

PATIENT
  Age: 38 Year
  Sex: Female

DRUGS (4)
  1. RIBAVIRIN [Suspect]
     Indication: HEPATITIS C
     Route: 065
     Dates: end: 20071201
  2. INTERFERON [Suspect]
     Indication: HEPATITIS C
     Route: 065
  3. COCAINE [Concomitant]
     Dosage: PRIOR TO CONCEPTION
  4. LORATADINE [Concomitant]

REACTIONS (2)
  - ALPHA 1 FOETOPROTEIN ABNORMAL [None]
  - PREGNANCY [None]
